FAERS Safety Report 15663082 (Version 1)
Quarter: 2018Q4

REPORT INFORMATION
  Report Type: Spontaneous
  Country: US (occurrence: US)
  Receive Date: 20181127
  Receipt Date: 20181127
  Transmission Date: 20190205
  Serious: No
  Sender: FDA-Public Use
  Company Number: US-SA-2018SA322400

PATIENT
  Age: 67 Year
  Sex: Female

DRUGS (1)
  1. PRALUENT [Suspect]
     Active Substance: ALIROCUMAB
     Indication: BLOOD CHOLESTEROL INCREASED
     Dosage: 75 MG, QOW

REACTIONS (6)
  - Insomnia [Unknown]
  - Rhinorrhoea [Unknown]
  - Myalgia [Unknown]
  - Pain [Unknown]
  - Nasopharyngitis [Unknown]
  - Bone pain [Unknown]

NARRATIVE: CASE EVENT DATE: 201809
